FAERS Safety Report 5114718-9 (Version None)
Quarter: 2006Q3

REPORT INFORMATION
  Report Type: 
  Country: None (occurrence: None)
  Receive Date: 20060922
  Receipt Date: 20060922
  Transmission Date: 20061208
  Serious: Yes (Hospitalization)
  Sender: FDA-Public Use
  Company Number: None

PATIENT
  Sex: Female
  Weight: 89.3586 kg

DRUGS (14)
  1. GEMCITABINE [Suspect]
     Indication: LEIOMYOSARCOMA
     Dosage: 900 MG/M2
     Dates: start: 20060830
  2. GEMCITABINE [Suspect]
     Indication: LEIOMYOSARCOMA
     Dosage: 900 MG/M2
     Dates: start: 20060906
  3. DOCETAXOL [Suspect]
     Dosage: 100 MG/M2
     Dates: start: 20060906
  4. VICODIN [Concomitant]
  5. PAXIL [Concomitant]
  6. PROTONIX [Concomitant]
  7. VASOTEC [Concomitant]
  8. ALLEGRA [Concomitant]
  9. ALBUTEROL [Concomitant]
  10. ACYCLOVIR [Concomitant]
  11. COMPAZINE [Concomitant]
  12. ZOFRAN [Concomitant]
  13. NITROGLYCERIN [Concomitant]
  14. DEXAMETHASONE TAB [Concomitant]

REACTIONS (3)
  - DYSPNOEA [None]
  - RESPIRATORY TRACT INFECTION [None]
  - WHITE BLOOD CELL COUNT INCREASED [None]
